FAERS Safety Report 21425763 (Version 1)
Quarter: 2022Q4

REPORT INFORMATION
  Report Type: Report from Study
  Country: DO (occurrence: DO)
  Receive Date: 20221008
  Receipt Date: 20221008
  Transmission Date: 20230113
  Serious: Yes (Hospitalization)
  Sender: FDA-Public Use
  Company Number: DO-JNJFOC-20221003625

PATIENT
  Age: 69 Year
  Sex: Female
  Weight: 55 kg

DRUGS (3)
  1. IMBRUVICA [Suspect]
     Active Substance: IBRUTINIB
     Indication: Chronic lymphocytic leukaemia
     Route: 048
     Dates: start: 20201201
  2. MEXAZOLAM [Concomitant]
     Active Substance: MEXAZOLAM
     Indication: Product used for unknown indication
     Route: 065
  3. ELECTROLIT [Concomitant]
     Indication: Product used for unknown indication
     Route: 048

REACTIONS (8)
  - Loss of consciousness [Unknown]
  - Cellulite [Unknown]
  - Decreased appetite [Unknown]
  - Blood potassium decreased [Unknown]
  - Motor dysfunction [Unknown]
  - Haemoglobin decreased [Unknown]
  - Rhinitis [Unknown]
  - Fall [Unknown]

NARRATIVE: CASE EVENT DATE: 20220919
